FAERS Safety Report 4831392-7 (Version None)
Quarter: 2005Q4

REPORT INFORMATION
  Report Type: 
  Country: None (occurrence: None)
  Receive Date: 20051118
  Receipt Date: 20051108
  Transmission Date: 20060501
  Serious: Yes (Hospitalization)
  Sender: FDA-Public Use
  Company Number: FR-GLAXOSMITHKLINE-B0399970A

PATIENT
  Age: 66 Year
  Sex: Female

DRUGS (5)
  1. ALKERAN [Suspect]
     Dosage: 222MG PER DAY
     Route: 048
     Dates: start: 20010827, end: 20010827
  2. MYLERAN [Suspect]
     Dosage: 240MG PER DAY
     Route: 048
     Dates: start: 20010822, end: 20010825
  3. PURINETHOL [Concomitant]
     Dosage: 1TAB PER DAY
     Route: 048
     Dates: start: 20030101
  4. ARACYTINE [Concomitant]
     Route: 065
     Dates: start: 20010206
  5. DAUNORUBICINE [Concomitant]
     Route: 065
     Dates: start: 20010206, end: 20010624

REACTIONS (1)
  - MYELODYSPLASTIC SYNDROME [None]
